FAERS Safety Report 13847731 (Version 1)
Quarter: 2017Q3

REPORT INFORMATION
  Report Type: Spontaneous
  Country: US (occurrence: US)
  Receive Date: 20170808
  Receipt Date: 20170808
  Transmission Date: 20171127
  Serious: No
  Sender: FDA-Public Use
  Company Number: None

PATIENT
  Age: 63 Year
  Sex: Male

DRUGS (1)
  1. ADCIRCA [Suspect]
     Active Substance: TADALAFIL

REACTIONS (8)
  - Pericardial effusion [None]
  - Dehydration [None]
  - Dyspnoea [None]
  - Pleural effusion [None]
  - Renal failure [None]
  - Blood pressure decreased [None]
  - Intestinal obstruction [None]
  - Pulmonary oedema [None]

NARRATIVE: CASE EVENT DATE: 20170727
